FAERS Safety Report 7554058-1 (Version None)
Quarter: 2011Q2

REPORT INFORMATION
  Report Type: 
  Country: None (occurrence: None)
  Receive Date: 20110617
  Receipt Date: 20110615
  Transmission Date: 20111010
  Serious: Yes (Death, Hospitalization)
  Sender: FDA-Public Use
  Company Number: SI-PFIZER INC-2006059090

PATIENT
  Age: 44 Year
  Sex: Female
  Weight: 45 kg

DRUGS (2)
  1. SUNITINIB MALATE [Suspect]
     Indication: METASTATIC RENAL CELL CARCINOMA
     Dosage: 50 MG, 1X/DAY
     Route: 048
     Dates: start: 20060318, end: 20060411
  2. NAKLOFEN [Concomitant]
     Route: 048
     Dates: start: 20060411

REACTIONS (2)
  - RESPIRATORY FAILURE [None]
  - ASTHENIA [None]
